FAERS Safety Report 21207833 (Version 1)
Quarter: 2022Q3

REPORT INFORMATION
  Report Type: Spontaneous
  Country: PY (occurrence: None)
  Receive Date: 20220812
  Receipt Date: 20220812
  Transmission Date: 20221027
  Serious: Yes (Death, Other)
  Sender: FDA-Public Use
  Company Number: PY-ROCHE-3154852

PATIENT
  Age: 71 Year
  Sex: Female

DRUGS (1)
  1. TECENTRIQ [Suspect]
     Active Substance: ATEZOLIZUMAB
     Indication: Breast cancer metastatic
     Route: 041
     Dates: start: 20220627

REACTIONS (5)
  - Acute kidney injury [Recovered/Resolved]
  - Pneumonia [Unknown]
  - Death [Fatal]
  - Dehydration [Unknown]
  - General physical health deterioration [Unknown]

NARRATIVE: CASE EVENT DATE: 20220704
